FAERS Safety Report 23297266 (Version 1)
Quarter: 2023Q4

REPORT INFORMATION
  Report Type: Other
  Country: CN (occurrence: CN)
  Receive Date: 20231214
  Receipt Date: 20231214
  Transmission Date: 20240110
  Serious: Yes (Other)
  Sender: FDA-Public Use
  Company Number: CN-GE HEALTHCARE-2023CSU011379

PATIENT
  Age: 56 Year
  Sex: Female
  Weight: 75 kg

DRUGS (4)
  1. OMNIPAQUE [Suspect]
     Active Substance: IOHEXOL
     Indication: Skin test
     Dosage: UNK, SINGLE
     Route: 023
     Dates: start: 20231130, end: 20231130
  2. OMNIPAQUE [Suspect]
     Active Substance: IOHEXOL
     Indication: Computerised tomogram
     Dosage: 90 ML, SINGLE
     Route: 042
     Dates: start: 20231130, end: 20231130
  3. OMNIPAQUE [Suspect]
     Active Substance: IOHEXOL
     Indication: Fatigue
  4. OMNIPAQUE [Suspect]
     Active Substance: IOHEXOL
     Indication: Discomfort

REACTIONS (4)
  - Sjogren^s syndrome [Recovering/Resolving]
  - Ocular hyperaemia [Recovering/Resolving]
  - Rash pruritic [Recovering/Resolving]
  - Off label use [Recovered/Resolved]

NARRATIVE: CASE EVENT DATE: 20231130
